FAERS Safety Report 5840598-X (Version None)
Quarter: 2008Q3

REPORT INFORMATION
  Report Type: 
  Country: None (occurrence: None)
  Receive Date: 20080811
  Receipt Date: 20080731
  Transmission Date: 20090109
  Serious: Yes (Hospitalization, Other)
  Sender: FDA-Public Use
  Company Number: US-ELI_LILLY_AND_COMPANY-US200808000129

PATIENT
  Sex: Female

DRUGS (6)
  1. CYMBALTA [Suspect]
     Indication: PAIN
     Dosage: 60 MG, DAILY (1/D)
     Dates: start: 20060101
  2. CYMBALTA [Suspect]
     Dosage: 1 D/F, UNK
  3. CYMBALTA [Suspect]
     Dosage: 60 MG, DAILY (1/D)
     Dates: start: 20070101, end: 20080101
  4. CYMBALTA [Suspect]
     Dosage: 1 D/F, UNK
     Dates: end: 20080101
  5. LEVOTHYROXINE SODIUM [Concomitant]
     Dosage: 1 D/F, DAILY (1/D)
     Dates: start: 19780101
  6. PREMARIN [Concomitant]
     Dosage: 0.65 MG, 3/W

REACTIONS (8)
  - DRUG WITHDRAWAL SYNDROME [None]
  - FURUNCLE [None]
  - HYPERHIDROSIS [None]
  - INFLUENZA LIKE ILLNESS [None]
  - NAUSEA [None]
  - PYREXIA [None]
  - SKIN DISCOLOURATION [None]
  - WOUND INFECTION STAPHYLOCOCCAL [None]
